FAERS Safety Report 24699040 (Version 1)
Quarter: 2024Q4

REPORT INFORMATION
  Report Type: Spontaneous
  Country: IN (occurrence: IN)
  Receive Date: 20241205
  Receipt Date: 20241205
  Transmission Date: 20250115
  Serious: Yes (Death, Other)
  Sender: DR REDDYS
  Company Number: IN-RDY-LIT/IND/24/0017848

PATIENT

DRUGS (5)
  1. LENALIDOMIDE [Suspect]
     Active Substance: LENALIDOMIDE
     Indication: Langerhans^ cell histiocytosis
  2. DEXAMETHASONE [Suspect]
     Active Substance: DEXAMETHASONE
     Indication: Langerhans^ cell histiocytosis
  3. VEMURAFENIB [Suspect]
     Active Substance: VEMURAFENIB
     Indication: Langerhans^ cell histiocytosis
  4. VINCRISTINE [Suspect]
     Active Substance: VINCRISTINE
     Indication: Langerhans^ cell histiocytosis
  5. ETOPOSIDE [Suspect]
     Active Substance: ETOPOSIDE
     Indication: Langerhans^ cell histiocytosis

REACTIONS (3)
  - Cholangitis sclerosing [Fatal]
  - Liver disorder [Fatal]
  - Product use in unapproved indication [Unknown]
